FAERS Safety Report 25100515 (Version 2)
Quarter: 2025Q2

REPORT INFORMATION
  Report Type: Spontaneous
  Country: GB (occurrence: GB)
  Receive Date: 20250320
  Receipt Date: 20250402
  Transmission Date: 20250717
  Serious: Yes (Death, Hospitalization, Other)
  Sender: ELI LILLY AND CO
  Company Number: None

PATIENT
  Age: 74 Year
  Sex: Female
  Weight: 71 kg

DRUGS (10)
  1. ABEMACICLIB [Suspect]
     Active Substance: ABEMACICLIB
     Indication: Neoplasm malignant
     Dosage: 150 MG, BID
     Route: 048
     Dates: start: 20240422, end: 20240607
  2. ABEMACICLIB [Suspect]
     Active Substance: ABEMACICLIB
     Dosage: 100 MG, BID
     Route: 048
     Dates: start: 20240608, end: 20250204
  3. LETROZOLE [Concomitant]
     Active Substance: LETROZOLE
     Indication: Product used for unknown indication
  4. APIXABAN [Concomitant]
     Active Substance: APIXABAN
     Indication: Product used for unknown indication
  5. CALCIUM CARBONATE\CHOLECALCIFEROL [Concomitant]
     Active Substance: CALCIUM CARBONATE\CHOLECALCIFEROL
     Indication: Product used for unknown indication
  6. ESOMEPRAZOLE [Concomitant]
     Active Substance: ESOMEPRAZOLE
     Indication: Product used for unknown indication
  7. BISOPROLOL [Concomitant]
     Active Substance: BISOPROLOL
     Indication: Product used for unknown indication
  8. LOSARTAN [Concomitant]
     Active Substance: LOSARTAN
     Indication: Product used for unknown indication
  9. FORCEVAL [AMINO ACIDS NOS;ELECTROLYTES NOS;FE [Concomitant]
     Indication: Product used for unknown indication
  10. ATORVASTATIN [Concomitant]
     Active Substance: ATORVASTATIN
     Indication: Product used for unknown indication

REACTIONS (13)
  - Lung consolidation [Fatal]
  - Hepatotoxicity [Unknown]
  - Haemoglobin increased [Unknown]
  - Pleural effusion [Unknown]
  - Dyspnoea [Unknown]
  - Liver function test abnormal [Unknown]
  - Cough [Unknown]
  - Pulmonary fibrosis [Unknown]
  - Pneumonia [Unknown]
  - Pneumonitis [Unknown]
  - Abnormal loss of weight [Unknown]
  - Decreased appetite [Unknown]
  - Fatigue [Unknown]

NARRATIVE: CASE EVENT DATE: 20240608
